FAERS Safety Report 7508708-6 (Version None)
Quarter: 2011Q2

REPORT INFORMATION
  Report Type: 
  Country: None (occurrence: None)
  Receive Date: 20110527
  Receipt Date: 20100816
  Transmission Date: 20111010
  Serious: No
  Sender: FDA-Public Use
  Company Number: A0876127A

PATIENT
  Age: 9 Year
  Sex: Male

DRUGS (1)
  1. VENTOLIN [Suspect]
     Dates: start: 20100814

REACTIONS (3)
  - APPLICATION SITE VESICLES [None]
  - BURNS SECOND DEGREE [None]
  - BURNS THIRD DEGREE [None]
